FAERS Safety Report 18395846 (Version 2)
Quarter: 2020Q4

REPORT INFORMATION
  Report Type: Report from Study
  Country: CA (occurrence: CA)
  Receive Date: 20201018
  Receipt Date: 20201130
  Transmission Date: 20210114
  Serious: Yes (Other)
  Sender: FDA-Public Use
  Company Number: CA-NALPROPION PHARMACEUTICALS INC.-2019-009109

PATIENT

DRUGS (6)
  1. DEXILANT [Concomitant]
     Active Substance: DEXLANSOPRAZOLE
     Indication: GASTRIC DISORDER
     Dosage: AS NEEDED (1 IN 1 D)
     Route: 048
  2. DEXILANT [Concomitant]
     Active Substance: DEXLANSOPRAZOLE
     Indication: GASTROOESOPHAGEAL REFLUX DISEASE
  3. CONTRAVE [Suspect]
     Active Substance: BUPROPION HYDROCHLORIDE\NALTREXONE HYDROCHLORIDE
     Dosage: 90MG/8MG, ONE TABLET IN MORNING AND ONE TABLET IN EVENING
     Route: 048
     Dates: start: 20191016, end: 20191029
  4. CONTRAVE [Suspect]
     Active Substance: BUPROPION HYDROCHLORIDE\NALTREXONE HYDROCHLORIDE
     Dosage: 90MG/8MG, TWO TABLETS IN MORNING AND TWO TABLETS IN EVENING
     Route: 048
     Dates: start: 20191030, end: 20200921
  5. CONTRAVE [Suspect]
     Active Substance: BUPROPION HYDROCHLORIDE\NALTREXONE HYDROCHLORIDE
     Dosage: 90MG/8MG, TWO TABLETS IN MORNING AND TWO TABLETS IN EVENING SECOND ATTEMPT
     Route: 048
     Dates: start: 20201108
  6. CONTRAVE [Suspect]
     Active Substance: BUPROPION HYDROCHLORIDE\NALTREXONE HYDROCHLORIDE
     Indication: WEIGHT CONTROL
     Dosage: 90MG/8MG, ONE TABLET IN MORNING
     Route: 048
     Dates: start: 20191009, end: 20191015

REACTIONS (16)
  - Taste disorder [Not Recovered/Not Resolved]
  - Dyspepsia [Unknown]
  - Dry mouth [Not Recovered/Not Resolved]
  - Abdominal pain [Unknown]
  - Food craving [Unknown]
  - Abdominal discomfort [Not Recovered/Not Resolved]
  - Drug titration error [Unknown]
  - Stress [Not Recovered/Not Resolved]
  - Dizziness [Recovered/Resolved]
  - Hepatic enzyme increased [Not Recovered/Not Resolved]
  - Insomnia [Unknown]
  - Vomiting [Unknown]
  - Product prescribing error [Unknown]
  - Cholelithiasis [Recovered/Resolved]
  - Appetite disorder [Unknown]
  - Constipation [Not Recovered/Not Resolved]

NARRATIVE: CASE EVENT DATE: 2019
